FAERS Safety Report 15450981 (Version 6)
Quarter: 2021Q3

REPORT INFORMATION
  Report Type: Report from Study
  Country: US (occurrence: US)
  Receive Date: 20181001
  Receipt Date: 20210701
  Transmission Date: 20211014
  Serious: Yes (Hospitalization, Other)
  Sender: FDA-Public Use
  Company Number: PHEH2018US039896

PATIENT
  Age: 18 Year
  Sex: Female
  Weight: 83.6 kg

DRUGS (3)
  1. AFINITOR [Suspect]
     Active Substance: EVEROLIMUS
     Indication: ASTROCYTOMA, LOW GRADE
     Dosage: 10 MG, QD
     Route: 048
     Dates: start: 20170707
  2. AFINITOR [Suspect]
     Active Substance: EVEROLIMUS
     Indication: SEIZURE
     Dosage: 10 MG, QD
     Route: 048
     Dates: start: 20180723
  3. KEPPRA [Suspect]
     Active Substance: LEVETIRACETAM
     Indication: PRODUCT USED FOR UNKNOWN INDICATION
     Dosage: UNK
     Route: 065

REACTIONS (5)
  - Decreased appetite [Recovering/Resolving]
  - Product dose omission issue [Unknown]
  - Hallucination [Recovered/Resolved with Sequelae]
  - Mental disorder [Unknown]
  - Hallucination, auditory [Recovered/Resolved with Sequelae]

NARRATIVE: CASE EVENT DATE: 20180817
